FAERS Safety Report 25352385 (Version 1)
Quarter: 2025Q2

REPORT INFORMATION
  Report Type: Spontaneous
  Country: US (occurrence: US)
  Receive Date: 20250523
  Receipt Date: 20250523
  Transmission Date: 20250716
  Serious: Yes (Hospitalization)
  Sender: MYLAN
  Company Number: US-MYLANLABS-2025M1042769

PATIENT
  Age: 23 Year
  Sex: Male

DRUGS (17)
  1. FLUPHENAZINE DECANOATE [Suspect]
     Active Substance: FLUPHENAZINE DECANOATE
     Indication: Psychotic disorder
  2. FLUPHENAZINE DECANOATE [Suspect]
     Active Substance: FLUPHENAZINE DECANOATE
     Indication: Agitation
  3. DEXMEDETOMIDINE [Suspect]
     Active Substance: DEXMEDETOMIDINE
     Indication: Neuroleptic malignant syndrome
  4. CLONIDINE [Suspect]
     Active Substance: CLONIDINE
     Indication: Neuroleptic malignant syndrome
  5. LORAZEPAM [Suspect]
     Active Substance: LORAZEPAM
     Indication: Neuroleptic malignant syndrome
  6. LORAZEPAM [Suspect]
     Active Substance: LORAZEPAM
  7. DANTROLENE [Suspect]
     Active Substance: DANTROLENE
     Indication: Neuroleptic malignant syndrome
  8. LORAZEPAM [Concomitant]
     Active Substance: LORAZEPAM
     Indication: Catatonia
     Dosage: 0.5 MILLIGRAM, TID
  9. CARBAMAZEPINE [Concomitant]
     Active Substance: CARBAMAZEPINE
     Indication: Psychotic disorder
  10. CARBAMAZEPINE [Concomitant]
     Active Substance: CARBAMAZEPINE
     Indication: Agitation
  11. CARBAMAZEPINE [Concomitant]
     Active Substance: CARBAMAZEPINE
     Indication: Catatonia
  12. GUANFACINE [Concomitant]
     Active Substance: GUANFACINE
     Indication: Agitation
  13. GUANFACINE [Concomitant]
     Active Substance: GUANFACINE
     Indication: Catatonia
  14. GUANFACINE [Concomitant]
     Active Substance: GUANFACINE
     Indication: Psychotic disorder
  15. BENZTROPINE [Concomitant]
     Active Substance: BENZTROPINE
     Indication: Catatonia
  16. BENZTROPINE [Concomitant]
     Active Substance: BENZTROPINE
     Indication: Psychotic disorder
  17. BENZTROPINE [Concomitant]
     Active Substance: BENZTROPINE
     Indication: Agitation

REACTIONS (3)
  - Neuroleptic malignant syndrome [Recovering/Resolving]
  - Drug ineffective [Unknown]
  - Drug intolerance [Unknown]
